FAERS Safety Report 8620500-8 (Version None)
Quarter: 2012Q3

REPORT INFORMATION
  Report Type: 
  Country: None (occurrence: None)
  Receive Date: 20120824
  Receipt Date: 20120816
  Transmission Date: 20120928
  Serious: Yes (Hospitalization, Other)
  Sender: FDA-Public Use
  Company Number: US-CELGENEUS-163-21880-12070207

PATIENT
  Sex: Male

DRUGS (5)
  1. REVLIMID [Suspect]
     Indication: MULTIPLE MYELOMA
     Dosage: 10 MILLIGRAM
     Route: 048
     Dates: start: 20100518
  2. CLARITHROMYCIN [Concomitant]
     Dosage: 1000 MILLIGRAM
     Route: 065
  3. ASPIRIN [Concomitant]
     Dosage: 162 MILLIGRAM
     Route: 048
  4. FLOMAX [Concomitant]
     Dosage: .4 MILLIGRAM
     Route: 048
  5. DEXAMETHASONE [Concomitant]
     Dosage: 4 MILLIGRAM
     Route: 065

REACTIONS (5)
  - GASTROENTERITIS VIRAL [None]
  - HYPERGLYCAEMIA [None]
  - URINARY RETENTION [None]
  - DRUG DOSE OMISSION [None]
  - MULTIPLE MYELOMA [None]
